FAERS Safety Report 5477890-7 (Version None)
Quarter: 2007Q4

REPORT INFORMATION
  Report Type: 
  Country: None (occurrence: None)
  Receive Date: 20071005
  Receipt Date: 20070926
  Transmission Date: 20080405
  Serious: Yes (Other)
  Sender: FDA-Public Use
  Company Number: PHMT2007CA01880

PATIENT
  Sex: Female

DRUGS (1)
  1. CLOZARIL [Suspect]
     Dosage: 200 MG ONCE
     Route: 048
     Dates: start: 20070906

REACTIONS (2)
  - CONFUSIONAL STATE [None]
  - DRUG DISPENSING ERROR [None]
